FAERS Safety Report 7145119-X (Version None)
Quarter: 2010Q4

REPORT INFORMATION
  Report Type: 
  Country: None (occurrence: None)
  Receive Date: 20101124
  Receipt Date: 20101115
  Transmission Date: 20110411
  Serious: Yes (Hospitalization)
  Sender: FDA-Public Use
  Company Number: 2010JP006695

PATIENT
  Age: 51 Year
  Sex: Female

DRUGS (1)
  1. PROGRAF [Suspect]
     Dosage: 2 MG/D, ORAL
     Route: 048
     Dates: start: 20100113

REACTIONS (1)
  - COLITIS ISCHAEMIC [None]
